FAERS Safety Report 7366009-3 (Version None)
Quarter: 2011Q1

REPORT INFORMATION
  Report Type: 
  Country: None (occurrence: None)
  Receive Date: 20110322
  Receipt Date: 20110315
  Transmission Date: 20110831
  Serious: Yes (Other)
  Sender: FDA-Public Use
  Company Number: US-SANOFI-AVENTIS-2011SA015908

PATIENT
  Age: 65 Year
  Sex: Female

DRUGS (2)
  1. ALLEGRA D 24 HOUR [Suspect]
     Route: 048
  2. ALLEGRA D 24 HOUR [Suspect]
     Indication: SEASONAL ALLERGY
     Route: 048

REACTIONS (2)
  - HYPERTENSION [None]
  - WRONG TECHNIQUE IN DRUG USAGE PROCESS [None]
